FAERS Safety Report 7753686-8 (Version None)
Quarter: 2011Q3

REPORT INFORMATION
  Report Type: 
  Country: None (occurrence: None)
  Receive Date: 20110915
  Receipt Date: 20110915
  Transmission Date: 20111222
  Serious: Yes (Hospitalization)
  Sender: FDA-Public Use
  Company Number: None

PATIENT
  Age: 54 Year
  Sex: Male
  Weight: 107 kg

DRUGS (6)
  1. LISINOPRIL [Concomitant]
     Route: 048
  2. DILTIAZEM [Suspect]
     Indication: ATRIAL FIBRILLATION
     Dosage: 360 MG
     Route: 048
     Dates: start: 20110708, end: 20110708
  3. WARFARIN SODIUM [Concomitant]
     Route: 048
  4. DIGOXIN [Concomitant]
     Route: 048
  5. CARVEDILOL [Concomitant]
     Route: 048
  6. ASPIRIN [Concomitant]
     Route: 048

REACTIONS (15)
  - MYALGIA [None]
  - VOMITING [None]
  - DIZZINESS [None]
  - DRUG ADMINISTRATION ERROR [None]
  - DEHYDRATION [None]
  - DIARRHOEA [None]
  - RASH MACULAR [None]
  - NAUSEA [None]
  - DYSPNOEA [None]
  - TREATMENT NONCOMPLIANCE [None]
  - PYREXIA [None]
  - HYPOAESTHESIA ORAL [None]
  - RENAL FAILURE ACUTE [None]
  - MUSCULOSKELETAL STIFFNESS [None]
  - DISORIENTATION [None]
